FAERS Safety Report 10235776 (Version 1)
Quarter: 2014Q2

REPORT INFORMATION
  Report Type: Spontaneous
  Country: GB (occurrence: GB)
  Receive Date: 20140613
  Receipt Date: 20140613
  Transmission Date: 20141212
  Serious: Yes (Hospitalization, Other)
  Sender: FDA-Public Use
  Company Number: GB-BAYER-2014-082996

PATIENT
  Age: 71 Year
  Sex: Female

DRUGS (4)
  1. CIPROFLOXACIN [Suspect]
     Indication: LUNG INFECTION PSEUDOMONAL
     Dosage: 500 MG, BID
     Route: 048
     Dates: start: 20140509, end: 20140509
  2. CIPROFLOXACIN [Suspect]
     Indication: LUNG INFECTION PSEUDOMONAL
     Dosage: 500 MG, UNK
     Route: 048
     Dates: start: 20140410, end: 20140420
  3. KLARICID [Concomitant]
     Dosage: 500 MG, UNK
     Route: 048
     Dates: start: 20140410, end: 20140420
  4. VENTOLIN [Concomitant]
     Indication: LUNG INFECTION PSEUDOMONAL
     Route: 055

REACTIONS (13)
  - Chills [Recovered/Resolved]
  - Back pain [Recovered/Resolved]
  - Dizziness [Recovered/Resolved]
  - Malaise [Recovered/Resolved]
  - Headache [Recovered/Resolved]
  - Petechiae [Recovered/Resolved]
  - Photosensitivity reaction [Recovered/Resolved]
  - Pyrexia [Recovered/Resolved]
  - Erythema [Recovered/Resolved]
  - Swelling face [Recovered/Resolved]
  - Peripheral swelling [Recovered/Resolved]
  - Tendonitis [Recovered/Resolved]
  - Tremor [Recovered/Resolved]
